FAERS Safety Report 5245933-1 (Version None)
Quarter: 2007Q1

REPORT INFORMATION
  Report Type: 
  Country: None (occurrence: None)
  Receive Date: 20070221
  Receipt Date: 20070212
  Transmission Date: 20070707
  Serious: Yes (Other)
  Sender: FDA-Public Use
  Company Number: OSCN-NO-0702S-0070

PATIENT
  Age: 65 Year
  Sex: Male
  Weight: 70 kg

DRUGS (13)
  1. OMNISCAN [Suspect]
     Indication: DRUG USE FOR UNKNOWN INDICATION
     Dosage: 15 ML, SINGLE DOSE, I.V.
     Route: 042
     Dates: start: 20030709, end: 20030709
  2. SALBUTAMOL [Concomitant]
  3. TRAMADOL HCL [Concomitant]
  4. THEOPHYLLINE [Concomitant]
  5. FUROSEMIDE [Concomitant]
  6. TIOTROPIUM BROMIDE [Concomitant]
  7. SALMETEROL [Concomitant]
  8. SEVELAMER [Concomitant]
  9. OMEPRAZOLE [Concomitant]
  10. CLOPIDOGREL [Concomitant]
  11. CETIRIZINE HYDROCHLORIDE (CETIRIZIN) [Concomitant]
  12. ZOLPIDEM [Concomitant]
  13. KETOROLAC GTT [Concomitant]

REACTIONS (2)
  - HAEMODIALYSIS [None]
  - NEPHROGENIC FIBROSING DERMOPATHY [None]
